FAERS Safety Report 20110047 (Version 1)
Quarter: 2021Q4

REPORT INFORMATION
  Report Type: Spontaneous
  Country: US (occurrence: None)
  Receive Date: 20211124
  Receipt Date: 20211124
  Transmission Date: 20220304
  Serious: Yes (Hospitalization, Disabling)
  Sender: FDA-Public Use
  Company Number: None

PATIENT
  Age: 76 Year
  Sex: Male
  Weight: 84.82 kg

DRUGS (5)
  1. CIPROFLOXACIN HCL [Suspect]
     Active Substance: CIPROFLOXACIN HYDROCHLORIDE
     Indication: Prostate infection
     Dosage: FREQUENCY : EVERY 12 HOURS;?
     Route: 048
     Dates: start: 20211020, end: 20211026
  2. LISINOPRIL [Concomitant]
     Active Substance: LISINOPRIL
  3. FINASTERIDE [Concomitant]
     Active Substance: FINASTERIDE
  4. HYDROCHLOROTHIAZIDE [Concomitant]
     Active Substance: HYDROCHLOROTHIAZIDE
  5. VITAMIN E [Concomitant]
     Active Substance: .ALPHA.-TOCOPHEROL

REACTIONS (4)
  - Arthralgia [None]
  - Sleep disorder [None]
  - Neuropathy peripheral [None]
  - Immobile [None]

NARRATIVE: CASE EVENT DATE: 20211025
